FAERS Safety Report 10619984 (Version 1)
Quarter: 2014Q4

REPORT INFORMATION
  Report Type: Spontaneous
  Country: US (occurrence: None)
  Receive Date: 20141201
  Receipt Date: 20141201
  Transmission Date: 20150529
  Serious: Yes (Other)
  Sender: FDA-Public Use
  Company Number: None

PATIENT
  Age: 34 Year
  Sex: Female
  Weight: 77.11 kg

DRUGS (1)
  1. METOPROLOL ER [Suspect]
     Active Substance: METOPROLOL SUCCINATE
     Indication: HYPERTENSION
     Dosage: 1 PILL ONCE DAILY TAKEN BY MOUTH
     Route: 048
     Dates: start: 20141121, end: 20141128

REACTIONS (7)
  - Product substitution issue [None]
  - Product quality issue [None]
  - Poor quality sleep [None]
  - Heart rate increased [None]
  - Insomnia [None]
  - Chest discomfort [None]
  - Feeling abnormal [None]

NARRATIVE: CASE EVENT DATE: 20141122
